FAERS Safety Report 10361093 (Version 2)
Quarter: 2014Q3

REPORT INFORMATION
  Report Type: Report from Study
  Country: US (occurrence: US)
  Receive Date: 20140804
  Receipt Date: 20140826
  Transmission Date: 20150326
  Serious: Yes (Hospitalization)
  Sender: FDA-Public Use
  Company Number: PHHY2014US094374

PATIENT
  Age: 69 Year
  Sex: Male

DRUGS (5)
  1. LEUCOVORIN [Suspect]
     Active Substance: LEUCOVORIN
     Indication: COLORECTAL CANCER METASTATIC
     Dosage: 200 MG/M2, ONCE IN 2 WEEKS, DATE OF LAST DOSE PRIOR TO SAE 08 JUL 2014
     Route: 042
     Dates: start: 20140603, end: 20140722
  2. IRINOTECAN [Suspect]
     Active Substance: IRINOTECAN
     Indication: COLORECTAL CANCER METASTATIC
     Dosage: 120 MG/M2, ONCE IN 2 WEEKS, DATE OF LAST DOSE PRIOR TO SAE 08 JUL 2014
     Route: 042
     Dates: start: 20140603, end: 20140722
  3. OXALIPLATIN. [Suspect]
     Active Substance: OXALIPLATIN
     Indication: COLORECTAL CANCER METASTATIC
     Dosage: 65 MG/M2 ONCE IN 2 WEEKS, DATE OF LAST DOSE PRIOR TO SAE ON 08 JUL 2014
     Route: 042
     Dates: start: 20140603, end: 20140722
  4. BEVACIZUMAB [Suspect]
     Active Substance: BEVACIZUMAB
     Indication: COLORECTAL CANCER METASTATIC
     Dosage: 5 MG/KG, ONCE IN 2 WEEKS, DATE OF LAST DOSE PRIOR TO SAE 24 JUN 2014
     Route: 042
     Dates: start: 20140603, end: 20140722
  5. 5-FLUOROURACIL [Suspect]
     Active Substance: FLUOROURACIL
     Indication: COLORECTAL CANCER METASTATIC
     Dosage: 2400 MG/M2, ONCE IN 2 WEEKS,DATE OF LAST DOSE PRIOR TO SAE 08 JUL 2014
     Route: 042
     Dates: start: 20140708, end: 20140722

REACTIONS (2)
  - Neutrophil count decreased [Recovered/Resolved]
  - Pyrexia [Recovered/Resolved]

NARRATIVE: CASE EVENT DATE: 20140720
